FAERS Safety Report 4408067-1 (Version None)
Quarter: 2004Q3

REPORT INFORMATION
  Report Type: 
  Country: None (occurrence: None)
  Receive Date: 20040726
  Receipt Date: 20040720
  Transmission Date: 20050211
  Serious: Yes (Life-Threatening, Hospitalization, Other)
  Sender: FDA-Public Use
  Company Number: GB-MERCK-0407GBR00199

PATIENT
  Age: 57 Year
  Sex: Female
  Weight: 65 kg

DRUGS (2)
  1. VIOXX [Suspect]
     Route: 048
     Dates: start: 20030101
  2. ESTRADIOL VALERATE [Concomitant]
     Indication: HORMONE REPLACEMENT THERAPY
     Route: 065
     Dates: start: 20000101

REACTIONS (1)
  - DISSEMINATED INTRAVASCULAR COAGULATION [None]
